FAERS Safety Report 4578066-8 (Version None)
Quarter: 2005Q1

REPORT INFORMATION
  Report Type: 
  Country: None (occurrence: None)
  Receive Date: 20050211
  Receipt Date: 20040917
  Transmission Date: 20050727
  Serious: Yes (Hospitalization, Disabling)
  Sender: FDA-Public Use
  Company Number: US-ABBOTT-04P-163-0273824-00

PATIENT
  Sex: Male
  Weight: 79.45 kg

DRUGS (46)
  1. DEPAKOTE [Suspect]
     Indication: EPILEPSY
     Route: 048
     Dates: start: 20020107, end: 20020317
  2. DEPAKOTE [Suspect]
     Dosage: 500MG AM AND 750MG PM
     Dates: end: 20020316
  3. DEPAKOTE [Suspect]
     Route: 048
     Dates: start: 20020317, end: 20020514
  4. DEPAKOTE [Suspect]
     Dosage: 1000MG AM AND 750MG PM
     Route: 048
     Dates: start: 20020515, end: 20020708
  5. DEPAKOTE [Suspect]
     Dosage: 750MG AM, 500MG NOON, 1000MG PM
     Route: 048
     Dates: start: 20020709, end: 20020928
  6. DEPAKOTE [Suspect]
     Dosage: 1000MG AM, 750MG NOON, 1000MG PM
     Route: 048
     Dates: start: 20020929, end: 20021030
  7. DEPAKOTE [Suspect]
     Dosage: 1000MG AM AND 750 MG NOON
     Route: 048
     Dates: start: 20021030, end: 20021107
  8. DEPAKOTE [Suspect]
     Dosage: 1000 MG TWICE DAILY AND 750 MG AT NOON
     Route: 048
     Dates: start: 20021107, end: 20021114
  9. DEPAKOTE [Suspect]
     Dosage: 1000 MG TWICE DAILY AND 500 MG AT NOON
     Dates: start: 20041114
  10. PHENYTOIN SODIUM [Concomitant]
     Indication: EPILEPSY
     Dates: start: 19710101
  11. PHENYTOIN SODIUM [Concomitant]
     Dosage: 100MG AM AND 200MG PM
     Route: 048
     Dates: end: 20020305
  12. PHENYTOIN SODIUM [Concomitant]
     Route: 048
     Dates: start: 20020305, end: 20020310
  13. PHENYTOIN SODIUM [Concomitant]
     Route: 048
     Dates: start: 20020310, end: 20020317
  14. PHENYTOIN SODIUM [Concomitant]
     Route: 048
     Dates: start: 20021101
  15. PRIMIDONE [Concomitant]
     Indication: EPILEPSY
     Dates: start: 19710101
  16. PRIMIDONE [Concomitant]
     Dosage: 500MG AM AND 375MG PM
     Route: 048
     Dates: end: 20020305
  17. PRIMIDONE [Concomitant]
     Route: 048
     Dates: start: 20020305, end: 20020419
  18. PRIMIDONE [Concomitant]
     Route: 048
     Dates: start: 20020419, end: 20020528
  19. PRIMIDONE [Concomitant]
     Route: 048
     Dates: start: 20020528, end: 20021114
  20. PRIMIDONE [Concomitant]
     Dosage: 250MG AM AND 375MG PM
     Route: 048
     Dates: start: 20021114, end: 20021210
  21. PRIMIDONE [Concomitant]
     Route: 048
     Dates: start: 20021210
  22. GUAIFENEX LA TABLETS [Concomitant]
     Indication: DRUG USE FOR UNKNOWN INDICATION
     Dates: start: 20001106
  23. ATENOLOL [Concomitant]
     Indication: HYPERTENSION
     Route: 048
     Dates: end: 20020317
  24. ATENOLOL [Concomitant]
     Route: 048
     Dates: start: 20020416, end: 20041019
  25. ATENOLOL [Concomitant]
     Route: 048
     Dates: start: 20021020, end: 20021113
  26. ATENOLOL [Concomitant]
     Route: 048
     Dates: start: 20021114
  27. FLUTICASONE PROPIONATE [Concomitant]
     Indication: DRUG USE FOR UNKNOWN INDICATION
     Route: 045
     Dates: start: 20011101
  28. LORATADINE [Concomitant]
     Indication: DRUG USE FOR UNKNOWN INDICATION
     Dates: start: 20000701
  29. ENALAPRIL MALEATE [Concomitant]
     Indication: DRUG USE FOR UNKNOWN INDICATION
     Route: 048
     Dates: start: 20021030, end: 20021114
  30. ENALAPRIL MALEATE [Concomitant]
     Route: 048
     Dates: start: 20021230
  31. LEVETIRACETAM [Concomitant]
     Indication: DRUG USE FOR UNKNOWN INDICATION
     Route: 048
     Dates: start: 20021114
  32. SERTRALINE HYDROCHLORIDE [Concomitant]
     Indication: DRUG USE FOR UNKNOWN INDICATION
     Route: 048
     Dates: start: 20021029, end: 20021030
  33. SERTRALINE HYDROCHLORIDE [Concomitant]
     Route: 048
     Dates: start: 20021030
  34. SERTRALINE HYDROCHLORIDE [Concomitant]
     Dates: end: 20021113
  35. SERTRALINE HYDROCHLORIDE [Concomitant]
     Route: 048
     Dates: start: 20021114
  36. CARBAMAZEPINE [Concomitant]
     Indication: EPILEPSY
     Route: 048
     Dates: start: 20011224, end: 20011228
  37. CARBAMAZEPINE [Concomitant]
     Route: 048
     Dates: start: 20011228
  38. BECLOMETHASONE DIPROPIONATE [Concomitant]
     Indication: DRUG USE FOR UNKNOWN INDICATION
     Route: 045
     Dates: start: 20000908
  39. ENTEX CAP [Concomitant]
     Indication: DRUG USE FOR UNKNOWN INDICATION
     Dates: start: 20000720
  40. FOLIC ACID [Concomitant]
     Indication: DRUG USE FOR UNKNOWN INDICATION
     Route: 048
  41. FOLIC ACID [Concomitant]
  42. MULTI-VITAMINS [Concomitant]
     Indication: DRUG USE FOR UNKNOWN INDICATION
     Route: 048
  43. TOCOPHEROL CONCENTRATE CAP [Concomitant]
     Indication: DRUG USE FOR UNKNOWN INDICATION
  44. ASCORBIC ACID [Concomitant]
     Indication: DRUG USE FOR UNKNOWN INDICATION
  45. LINSEED OIL [Concomitant]
     Indication: DRUG USE FOR UNKNOWN INDICATION
  46. ASPIRIN [Concomitant]
     Indication: DRUG USE FOR UNKNOWN INDICATION
     Route: 048

REACTIONS (69)
  - ABASIA [None]
  - ACTIVITIES OF DAILY LIVING IMPAIRED [None]
  - AFFECT LABILITY [None]
  - ALANINE AMINOTRANSFERASE INCREASED [None]
  - AMMONIA INCREASED [None]
  - ANAEMIA [None]
  - ANTICONVULSANT DRUG LEVEL INCREASED [None]
  - ANTINUCLEAR ANTIBODY [None]
  - APATHY [None]
  - ARRHYTHMIA [None]
  - ASPARTATE AMINOTRANSFERASE INCREASED [None]
  - ASTHENIA [None]
  - ATRIOVENTRICULAR BLOCK FIRST DEGREE [None]
  - BLOOD ALKALINE PHOSPHATASE INCREASED [None]
  - BLOOD GLUCOSE DECREASED [None]
  - BLOOD UREA INCREASED [None]
  - BRADYPHRENIA [None]
  - CARDIOMYOPATHY [None]
  - COGNITIVE DISORDER [None]
  - CONFUSIONAL STATE [None]
  - CONTUSION [None]
  - COORDINATION ABNORMAL [None]
  - DELUSION [None]
  - DERMATITIS CONTACT [None]
  - DIFFICULTY IN WALKING [None]
  - DRUG LEVEL DECREASED [None]
  - DRUG LEVEL INCREASED [None]
  - DRUG TOXICITY [None]
  - DYSARTHRIA [None]
  - DYSKINESIA [None]
  - EJECTION FRACTION DECREASED [None]
  - ELECTROENCEPHALOGRAM ABNORMAL [None]
  - ENCEPHALOPATHY [None]
  - EXERCISE TOLERANCE DECREASED [None]
  - FAECAL INCONTINENCE [None]
  - FAMILY STRESS [None]
  - FULL BLOOD COUNT ABNORMAL [None]
  - GAIT DISTURBANCE [None]
  - GENERAL PHYSICAL HEALTH DETERIORATION [None]
  - HAEMATOCRIT DECREASED [None]
  - HAEMOGLOBIN DECREASED [None]
  - HYPERKERATOSIS [None]
  - HYPERLIPIDAEMIA [None]
  - HYPERTENSION [None]
  - MAJOR DEPRESSION [None]
  - MEMORY IMPAIRMENT [None]
  - MENTAL DISORDER DUE TO A GENERAL MEDICAL CONDITION [None]
  - MENTAL IMPAIRMENT [None]
  - MENTAL STATUS CHANGES [None]
  - MOANING [None]
  - MOBILITY DECREASED [None]
  - MYOCARDITIS [None]
  - PAIN [None]
  - PRURITUS [None]
  - PSEUDODEMENTIA [None]
  - SEDATION [None]
  - SENSORY LOSS [None]
  - SINUS BRADYCARDIA [None]
  - SKIN LACERATION [None]
  - SOMNOLENCE [None]
  - SPEECH DISORDER [None]
  - STRESS [None]
  - TOXIC INDUCED ENCEPHALOPATHY [None]
  - TREMOR [None]
  - UNEVALUABLE EVENT [None]
  - URINARY INCONTINENCE [None]
  - VENTRICULAR HYPERTROPHY [None]
  - VENTRICULAR HYPOKINESIA [None]
  - VENTRICULAR INTERNAL DIAMETER ABNORMAL [None]
